FAERS Safety Report 17293569 (Version 3)
Quarter: 2020Q1

REPORT INFORMATION
  Report Type: Report from Study
  Country: US (occurrence: US)
  Receive Date: 20200121
  Receipt Date: 20200331
  Transmission Date: 20200409
  Serious: No
  Sender: FDA-Public Use
  Company Number: NVSC2019US045982

PATIENT
  Age: 18 Year
  Sex: Female

DRUGS (1)
  1. GILENYA [Suspect]
     Active Substance: FINGOLIMOD HYDROCHLORIDE
     Indication: MULTIPLE SCLEROSIS
     Dosage: 0.5 MG, QD
     Route: 048
     Dates: start: 20190131

REACTIONS (4)
  - Pharyngitis streptococcal [Recovered/Resolved]
  - Hepatic enzyme increased [Unknown]
  - Haematuria [Unknown]
  - Bacteriuria [Unknown]

NARRATIVE: CASE EVENT DATE: 20200320
